FAERS Safety Report 25648155 (Version 2)
Quarter: 2025Q4

REPORT INFORMATION
  Report Type: Spontaneous
  Country: US (occurrence: US)
  Receive Date: 20250806
  Receipt Date: 20251017
  Transmission Date: 20260117
  Serious: No
  Sender: SANOFI AVENTIS
  Company Number: US-SA-2025SA228608

PATIENT
  Age: 4 Year
  Sex: Male
  Weight: 16.3 kg

DRUGS (4)
  1. DUPIXENT [Suspect]
     Active Substance: DUPILUMAB
     Indication: Dermatitis atopic
     Dosage: 300 MG, Q4W
     Route: 058
     Dates: start: 20240301, end: 2025
  2. MUPIROCIN [Concomitant]
     Active Substance: MUPIROCIN
     Dates: start: 20250716
  3. EPINEPHRINE [Concomitant]
     Active Substance: EPINEPHRINE
     Dates: start: 20250716
  4. FLUOCINOLONE [Concomitant]
     Active Substance: FLUOCINOLONE
     Dates: start: 20250716

REACTIONS (2)
  - Pruritus [Unknown]
  - Product dose omission issue [Unknown]

NARRATIVE: CASE EVENT DATE: 20250101
